FAERS Safety Report 10566964 (Version 1)
Quarter: 2014Q4

REPORT INFORMATION
  Report Type: Spontaneous
  Country: PL (occurrence: PL)
  Receive Date: 20141105
  Receipt Date: 20141105
  Transmission Date: 20150529
  Serious: Yes (Other)
  Sender: FDA-Public Use
  Company Number: PL-GE HEALTHCARE MEDICAL DIAGNOSTICS-OMPQ-PR-1410S-1347

PATIENT
  Age: 58 Year
  Sex: Male
  Weight: 67 kg

DRUGS (6)
  1. NOWORAPID [Concomitant]
  2. OMNIPAQUE [Suspect]
     Active Substance: IOHEXOL
     Indication: PANCREATIC MASS
     Route: 042
     Dates: start: 20141023, end: 20141023
  3. OMNIPAQUE [Suspect]
     Active Substance: IOHEXOL
     Indication: DIAGNOSTIC PROCEDURE
  4. POLTRAM [Concomitant]
     Indication: PAIN
  5. NOWOMIX [Concomitant]
  6. LIPANCREA [Concomitant]

REACTIONS (1)
  - Eczema [Recovered/Resolved]

NARRATIVE: CASE EVENT DATE: 20141023
